FAERS Safety Report 16875393 (Version 1)
Quarter: 2019Q4

REPORT INFORMATION
  Report Type: Spontaneous
  Country: JP (occurrence: JP)
  Receive Date: 20191002
  Receipt Date: 20191002
  Transmission Date: 20200122
  Serious: Yes (Death, Other)
  Sender: FDA-Public Use
  Company Number: JP-ROCHE-2375221

PATIENT
  Age: 29 Year
  Sex: Female

DRUGS (3)
  1. RITUXAN [Suspect]
     Active Substance: RITUXIMAB
     Indication: THROMBOTIC MICROANGIOPATHY
     Route: 041
  2. PREDNISOLONE. [Concomitant]
     Active Substance: PREDNISOLONE
  3. TACROLIMUS. [Concomitant]
     Active Substance: TACROLIMUS

REACTIONS (6)
  - Cardiac arrest [Fatal]
  - Haemophagocytic lymphohistiocytosis [Unknown]
  - Product use in unapproved indication [Fatal]
  - Systemic candida [Unknown]
  - Off label use [Fatal]
  - Pseudomonal bacteraemia [Unknown]
